FAERS Safety Report 6070823-4 (Version None)
Quarter: 2009Q1

REPORT INFORMATION
  Report Type: 
  Country: None (occurrence: None)
  Receive Date: 20090209
  Receipt Date: 20080731
  Transmission Date: 20090719
  Serious: No
  Sender: FDA-Public Use
  Company Number: A0741438A

PATIENT
  Age: 59 Year
  Sex: Male
  Weight: 113.6 kg

DRUGS (8)
  1. PAXIL [Suspect]
     Indication: DEPRESSION
     Dosage: 20MG UNKNOWN
     Route: 048
     Dates: start: 19950101, end: 20080715
  2. FENTANYL-75 [Suspect]
     Indication: PAIN
     Dosage: 1PAT EVERY 3 DAYS
     Route: 062
     Dates: start: 20080715
  3. MIRTAZAPINE [Suspect]
     Indication: DEPRESSION
     Route: 048
     Dates: start: 20080702
  4. HYDROCODONE BITARTRATE [Concomitant]
  5. PROGRAF [Concomitant]
  6. LYRICA [Concomitant]
  7. BUPROPION HCL [Concomitant]
  8. SOMA [Concomitant]

REACTIONS (9)
  - ANXIETY [None]
  - CONFUSIONAL STATE [None]
  - DEPRESSION [None]
  - DISORIENTATION [None]
  - DRUG WITHDRAWAL SYNDROME [None]
  - DYSPNOEA [None]
  - PAIN [None]
  - PALPITATIONS [None]
  - SPEECH DISORDER [None]
